FAERS Safety Report 25831990 (Version 1)
Quarter: 2025Q3

REPORT INFORMATION
  Report Type: Spontaneous
  Country: US (occurrence: None)
  Receive Date: 20250921
  Receipt Date: 20250921
  Transmission Date: 20251020
  Serious: Yes (unspecified)
  Sender: FDA-CTU
  Company Number: None

PATIENT
  Age: 69 Year
  Sex: Female
  Weight: 75.15 kg

DRUGS (9)
  1. VTAMA [Suspect]
     Active Substance: TAPINAROF
     Indication: Psoriasis
     Dosage: OTHER ROUTE : APPLY ONCE DAILY;?
     Route: 050
     Dates: start: 20250331, end: 20250402
  2. C pap [Concomitant]
  3. LETROZOLE [Concomitant]
     Active Substance: LETROZOLE
  4. LISINOPRIL [Concomitant]
     Active Substance: LISINOPRIL
  5. ATORVASTATIN [Concomitant]
     Active Substance: ATORVASTATIN
  6. JANUVIA [Concomitant]
     Active Substance: SITAGLIPTIN PHOSPHATE
  7. JARDIANCE [Concomitant]
     Active Substance: EMPAGLIFLOZIN
  8. B6 centrum [Concomitant]
  9. omega3 [Concomitant]

REACTIONS (3)
  - Nail bed inflammation [None]
  - Abscess [None]
  - Drug hypersensitivity [None]

NARRATIVE: CASE EVENT DATE: 20250403
